FAERS Safety Report 9438561 (Version 1)
Quarter: 2013Q3

REPORT INFORMATION
  Report Type: Spontaneous
  Country: FR (occurrence: FR)
  Receive Date: 20130802
  Receipt Date: 20130802
  Transmission Date: 20140515
  Serious: Yes (Other)
  Sender: FDA-Public Use
  Company Number: FR-B.I. PHARMACEUTICALS,INC./RIDGEFIELD-2013-FF-02041FF

PATIENT
  Age: 54 Year
  Sex: Male

DRUGS (1)
  1. SIFROL [Suspect]
     Indication: PARKINSON^S DISEASE
     Route: 048
     Dates: start: 200609, end: 201307

REACTIONS (3)
  - Eating disorder symptom [Recovered/Resolved]
  - Hypersexuality [Recovered/Resolved]
  - Compulsive shopping [Recovered/Resolved]
